FAERS Safety Report 15749529 (Version 3)
Quarter: 2019Q1

REPORT INFORMATION
  Report Type: Spontaneous
  Country: FR (occurrence: FR)
  Receive Date: 20181221
  Receipt Date: 20190211
  Transmission Date: 20190417
  Serious: Yes (Death, Hospitalization)
  Sender: FDA-Public Use
  Company Number: FR-ZYDUS-031715

PATIENT
  Age: 65 Year
  Sex: Male
  Weight: 55.1 kg

DRUGS (15)
  1. PENTAMIDINE [Concomitant]
     Active Substance: PENTAMIDINE
     Indication: ANTIFUNGAL PROPHYLAXIS
     Route: 055
     Dates: start: 20181001, end: 20181001
  2. RAMIPRIL. [Concomitant]
     Active Substance: RAMIPRIL
     Indication: HYPERTENSION
     Route: 048
  3. LEVETIRACETAM. [Suspect]
     Active Substance: LEVETIRACETAM
     Indication: EPILEPSY
     Route: 048
  4. ABACAVIR. [Concomitant]
     Active Substance: ABACAVIR
     Indication: HIV INFECTION
     Dosage: 300 MG FILM-COATED TABLET
     Route: 048
  5. PARACETAMOL [Concomitant]
     Active Substance: ACETAMINOPHEN
     Indication: ANALGESIC INTERVENTION SUPPORTIVE THERAPY
     Route: 048
  6. PREZISTA [Concomitant]
     Active Substance: DARUNAVIR ETHANOLATE
     Indication: HIV INFECTION
     Route: 048
  7. DARBEPOETIN ALFA [Concomitant]
     Active Substance: DARBEPOETIN ALFA
     Indication: ANAEMIA
     Route: 058
  8. LAMIVUDINE. [Concomitant]
     Active Substance: LAMIVUDINE
     Indication: HIV INFECTION
     Route: 048
  9. RISPERIDONE. [Suspect]
     Active Substance: RISPERIDONE
     Indication: PSYCHOTIC DISORDER
     Dosage: 1 MG / ML, ORAL SOLUTION
     Route: 048
     Dates: start: 20181106
  10. VALPROIC ACID. [Suspect]
     Active Substance: VALPROIC ACID
     Indication: EPILEPSY
     Route: 048
  11. RITONAVIR MYLAN [Concomitant]
     Indication: HIV INFECTION
     Route: 048
  12. SODIUM CHLORIDE. [Concomitant]
     Active Substance: SODIUM CHLORIDE
     Indication: FLUID REPLACEMENT
     Dates: start: 20181031
  13. HEPARIN [Concomitant]
     Active Substance: HEPARIN SODIUM
     Indication: ANTICOAGULANT THERAPY
     Route: 058
     Dates: start: 20181008, end: 20181118
  14. PREDNISONE. [Concomitant]
     Active Substance: PREDNISONE
     Indication: NEPHROTIC SYNDROME
     Route: 048
  15. ZOPICLONE [Concomitant]
     Active Substance: ZOPICLONE
     Indication: INSOMNIA
     Dosage: 7.5 MG FILM-COATED TABLETS
     Route: 048
     Dates: start: 20181015

REACTIONS (1)
  - Hypothermia [Recovered/Resolved]

NARRATIVE: CASE EVENT DATE: 20181107
